FAERS Safety Report 23139113 (Version 1)
Quarter: 2023Q4

REPORT INFORMATION
  Report Type: Spontaneous
  Country: FR (occurrence: FR)
  Receive Date: 20231102
  Receipt Date: 20231102
  Transmission Date: 20240110
  Serious: Yes (Other)
  Sender: FDA-Public Use
  Company Number: FR-ORGANON-O2310FRA003742

PATIENT
  Sex: Female

DRUGS (2)
  1. NEXPLANON [Suspect]
     Active Substance: ETONOGESTREL
     Dosage: 1 IMPLANT
     Route: 059
  2. NEXPLANON [Suspect]
     Active Substance: ETONOGESTREL
     Dosage: 1 IMPLANT
     Route: 059
     Dates: start: 202301

REACTIONS (6)
  - Thrombocytopenia [Unknown]
  - Device dislocation [Not Recovered/Not Resolved]
  - Complication of device removal [Not Recovered/Not Resolved]
  - Implant site pain [Unknown]
  - Device intolerance [Unknown]
  - Wrong technique in device usage process [Unknown]
